FAERS Safety Report 8236825-4 (Version None)
Quarter: 2012Q1

REPORT INFORMATION
  Report Type: 
  Country: None (occurrence: None)
  Receive Date: 20120327
  Receipt Date: 20120322
  Transmission Date: 20120608
  Serious: Yes (Other)
  Sender: FDA-Public Use
  Company Number: GR-PFIZER INC-2012076818

PATIENT
  Sex: Male

DRUGS (1)
  1. ALDACTONE [Suspect]
     Indication: CARDIAC FAILURE

REACTIONS (1)
  - BREAST CANCER [None]
